FAERS Safety Report 16823411 (Version 3)
Quarter: 2019Q4

REPORT INFORMATION
  Report Type: Spontaneous
  Country: US (occurrence: US)
  Receive Date: 20190918
  Receipt Date: 20191202
  Transmission Date: 20200122
  Serious: Yes (Hospitalization, Other)
  Sender: FDA-Public Use
  Company Number: US-BAYER-2019-165403

PATIENT
  Sex: Male

DRUGS (4)
  1. KOGENATE FS [Suspect]
     Active Substance: ANTIHEMOPHILIC FACTOR, HUMAN RECOMBINANT
     Indication: HIV INFECTION
     Dosage: 6000 U, QOD
     Route: 042
     Dates: start: 200401
  2. HEMLIBRA [Concomitant]
     Active Substance: EMICIZUMAB-KXWH
     Dosage: PREVENTIVELY
  3. KOGENATE FS [Suspect]
     Active Substance: ANTIHEMOPHILIC FACTOR, HUMAN RECOMBINANT
     Indication: FACTOR VIII DEFICIENCY
     Dosage: 6000 IU
     Route: 042
     Dates: start: 20190115
  4. KOGENATE FS [Suspect]
     Active Substance: ANTIHEMOPHILIC FACTOR, HUMAN RECOMBINANT
     Indication: HIV INFECTION
     Dosage: 6000 U, Q8HR
     Route: 042
     Dates: start: 20190903

REACTIONS (6)
  - Haemarthrosis [Recovered/Resolved]
  - Haemarthrosis [Recovered/Resolved]
  - Haemarthrosis [Recovered/Resolved]
  - Haemarthrosis [Not Recovered/Not Resolved]
  - Urinary tract infection [None]
  - Urinary tract pain [None]

NARRATIVE: CASE EVENT DATE: 2019
